FAERS Safety Report 16059053 (Version 1)
Quarter: 2019Q1

REPORT INFORMATION
  Report Type: Spontaneous
  Country: ES (occurrence: ES)
  Receive Date: 20190311
  Receipt Date: 20190311
  Transmission Date: 20190418
  Serious: Yes (Other)
  Sender: FDA-Public Use
  Company Number: PHHY2019ES051810

PATIENT
  Age: 75 Year
  Sex: Male

DRUGS (1)
  1. NEPARVIS [Suspect]
     Active Substance: SACUBITRIL\VALSARTAN
     Indication: HYPERTENSION
     Dosage: 1 DF, Q12H
     Route: 048
     Dates: start: 20180711, end: 20190226

REACTIONS (2)
  - Dysuria [Recovered/Resolved]
  - Urine flow decreased [Recovered/Resolved]

NARRATIVE: CASE EVENT DATE: 20180711
